FAERS Safety Report 6502494-4 (Version None)
Quarter: 2009Q4

REPORT INFORMATION
  Report Type: 
  Country: None (occurrence: None)
  Receive Date: 20091217
  Receipt Date: 20091204
  Transmission Date: 20100525
  Serious: Yes (Other)
  Sender: FDA-Public Use
  Company Number: US-BIOGENIDEC-2009BI038629

PATIENT
  Age: 62 Year
  Sex: Male

DRUGS (13)
  1. TYSABRI [Suspect]
     Indication: MULTIPLE SCLEROSIS
     Route: 042
     Dates: start: 20071004
  2. WARFARIN SODIUM [Concomitant]
  3. WARFARIN SODIUM [Concomitant]
  4. AVAPRO [Concomitant]
  5. NEURONTIN [Concomitant]
  6. BACLOFEN [Concomitant]
  7. ANTARA (MICRONIZED) [Concomitant]
  8. METFORMIN HCL [Concomitant]
  9. DIOVAN [Concomitant]
     Indication: HYPERTENSION
  10. CENTRUM SILVER [Concomitant]
  11. ALENDRONATE SODIUM [Concomitant]
     Indication: OSTEOPOROSIS
  12. MAGNESIUM [Concomitant]
  13. ACAI [Concomitant]

REACTIONS (1)
  - TRANSITIONAL CELL CARCINOMA [None]
